FAERS Safety Report 8360897-X (Version None)
Quarter: 2012Q2

REPORT INFORMATION
  Report Type: 
  Country: None (occurrence: None)
  Receive Date: 20120515
  Receipt Date: 20120509
  Transmission Date: 20120825
  Serious: Yes (Hospitalization)
  Sender: FDA-Public Use
  Company Number: FR-BRISTOL-MYERS SQUIBB COMPANY-15816358

PATIENT
  Age: 69 Year
  Sex: Male

DRUGS (11)
  1. LASIX [Suspect]
     Indication: MYOCARDIAL ISCHAEMIA
     Dosage: 1DF:6TABS; LASILIX 40MG
     Route: 048
  2. LYRICA [Concomitant]
     Indication: PAIN
  3. TENORMIN [Suspect]
     Indication: MYOCARDIAL ISCHAEMIA
     Dosage: 1DF:8TABS TENORMINE 50MG
     Route: 048
  4. MIRTAZAPINE [Concomitant]
     Indication: DEPRESSION
     Route: 048
  5. TRIMEPRAZINE TARTRATE [Concomitant]
     Indication: DEPRESSION
  6. ASPIRIN [Concomitant]
     Indication: MYOCARDIAL ISCHAEMIA
     Route: 048
  7. BUSPAR [Suspect]
     Indication: DEPRESSION
     Route: 048
  8. ATARAX [Suspect]
     Indication: DEPRESSION
     Route: 048
  9. PRAVASTATIN [Concomitant]
     Indication: HYPERCHOLESTEROLAEMIA
     Route: 048
  10. GLUCOPHAGE [Suspect]
     Indication: TYPE 2 DIABETES MELLITUS
     Dosage: 1DF:20TABS
     Route: 048
  11. RAMIPRIL [Suspect]
     Indication: MYOCARDIAL ISCHAEMIA
     Dosage: 1DF:20INTAKES, 2.5 MG SCORED TABLET
     Route: 048

REACTIONS (3)
  - MULTIPLE DRUG OVERDOSE [None]
  - HYPOGLYCAEMIA [None]
  - SUICIDE ATTEMPT [None]
